FAERS Safety Report 10401184 (Version 2)
Quarter: 2014Q3

REPORT INFORMATION
  Report Type: Spontaneous
  Country: US (occurrence: US)
  Receive Date: 20140822
  Receipt Date: 20140929
  Transmission Date: 20150326
  Serious: Yes (Death, Hospitalization)
  Sender: FDA-Public Use
  Company Number: US-AMGEN-USASP2014063317

PATIENT
  Age: 96 Year
  Sex: Female
  Weight: 52.4 kg

DRUGS (1)
  1. PROLIA [Suspect]
     Active Substance: DENOSUMAB
     Indication: OSTEOPOROSIS POSTMENOPAUSAL
     Dosage: 60 MG, Q6MO
     Route: 065
     Dates: start: 20130201

REACTIONS (4)
  - Dizziness [Unknown]
  - Cardiac failure congestive [Unknown]
  - Cardio-respiratory arrest [Fatal]
  - Respiratory disorder [Unknown]
